FAERS Safety Report 5337822-9 (Version None)
Quarter: 2007Q2

REPORT INFORMATION
  Report Type: 
  Country: None (occurrence: None)
  Receive Date: 20070308
  Receipt Date: 20070111
  Transmission Date: 20071010
  Serious: No
  Sender: FDA-Public Use
  Company Number: 2006-BP-15109BP

PATIENT
  Age: 80 Year
  Sex: Female
  Weight: 68.04 kg

DRUGS (2)
  1. SPIRIVA [Suspect]
     Indication: CHRONIC OBSTRUCTIVE PULMONARY DISEASE
     Dosage: 18 MCG (18 MCG, QD PRN), IH
     Route: 055
     Dates: start: 20040701
  2. SPIRIVA [Suspect]

REACTIONS (1)
  - DRUG INEFFECTIVE [None]
